FAERS Safety Report 8585269-4 (Version None)
Quarter: 2012Q3

REPORT INFORMATION
  Report Type: 
  Country: None (occurrence: None)
  Receive Date: 20120810
  Receipt Date: 20120808
  Transmission Date: 20120928
  Serious: Yes (Hospitalization)
  Sender: FDA-Public Use
  Company Number: PHHY2012FR061967

PATIENT
  Sex: Male

DRUGS (7)
  1. MODOPAR LP [Suspect]
     Dosage: 4 DF, DAILY
     Dates: start: 20070101
  2. EXELON [Suspect]
     Dosage: 1 DF, DAILY
     Route: 062
     Dates: start: 20070101
  3. ESCITALOPRAM [Suspect]
     Dosage: 1 DF, DAILY
     Dates: start: 20070101
  4. MODOPAR [Suspect]
     Dosage: 1 DF, DAILY
     Dates: start: 20070101
  5. OXYBUTYNIN CHLORIDE [Suspect]
     Dosage: 2 DF, DAILY
     Dates: start: 20070101
  6. CLOZAPINE [Suspect]
     Dosage: 1 DF, DAILY
     Route: 048
     Dates: start: 20070101
  7. ASPIRIN [Concomitant]
     Dosage: 1 DF, DAILY

REACTIONS (4)
  - APHASIA [None]
  - HEMIPLEGIA [None]
  - ASTHENIA [None]
  - CEREBROVASCULAR ACCIDENT [None]
